FAERS Safety Report 8506647-5 (Version None)
Quarter: 2012Q3

REPORT INFORMATION
  Report Type: 
  Country: None (occurrence: None)
  Receive Date: 20120703
  Receipt Date: 20120625
  Transmission Date: 20120928
  Serious: Yes (Death)
  Sender: FDA-Public Use
  Company Number: DSA_57461_2012

PATIENT
  Sex: Female

DRUGS (5)
  1. ZYPREXA [Concomitant]
  2. XENAZINE [Suspect]
     Indication: HUNTINGTON'S DISEASE
     Dosage: (50 MG QD ORAL)
     Route: 048
     Dates: start: 20120120, end: 20120505
  3. CLONIDINE [Concomitant]
  4. RITALIN [Concomitant]
  5. DEPAKOTE [Concomitant]

REACTIONS (1)
  - DEATH [None]
